FAERS Safety Report 5879991-8 (Version None)
Quarter: 2008Q3

REPORT INFORMATION
  Report Type: 
  Country: None (occurrence: None)
  Receive Date: 20080912
  Receipt Date: 20080901
  Transmission Date: 20090109
  Serious: Yes (Life-Threatening)
  Sender: FDA-Public Use
  Company Number: SI-PFIZER INC-2008055824

PATIENT
  Sex: Male
  Weight: 78 kg

DRUGS (10)
  1. SU-011,248 [Suspect]
     Indication: METASTATIC RENAL CELL CARCINOMA
     Route: 048
     Dates: start: 20080528, end: 20080531
  2. EUTHYROX [Concomitant]
     Route: 048
     Dates: start: 20080116
  3. FUROSEMID [Concomitant]
     Route: 048
     Dates: start: 20080323
  4. AMLODIPINE [Concomitant]
     Route: 048
     Dates: end: 20080601
  5. DOXAZOSIN MESYLATE [Concomitant]
     Route: 048
     Dates: start: 20071222, end: 20080601
  6. ALLOPURINOL [Concomitant]
     Route: 048
     Dates: start: 20070405, end: 20080527
  7. EPOETIN BETA [Concomitant]
     Route: 058
     Dates: start: 20080523, end: 20080527
  8. CALCIUM CARBONATE [Concomitant]
     Route: 048
     Dates: start: 20080523, end: 20080527
  9. FERRUM ORAL ^LEK^ [Concomitant]
     Route: 048
     Dates: start: 20080327, end: 20080601
  10. ALL OTHER THERAPEUTIC PRODUCTS [Concomitant]
     Route: 048
     Dates: start: 20080523, end: 20080527

REACTIONS (1)
  - CAPILLARY LEAK SYNDROME [None]
